FAERS Safety Report 6072215-0 (Version None)
Quarter: 2009Q1

REPORT INFORMATION
  Report Type: 
  Country: None (occurrence: None)
  Receive Date: 20090206
  Receipt Date: 20090206
  Transmission Date: 20090719
  Serious: Yes (Hospitalization, Other)
  Sender: FDA-Public Use
  Company Number: None

PATIENT
  Age: 20 Year
  Sex: Male
  Weight: 65.7716 kg

DRUGS (1)
  1. ZYPREXA [Suspect]

REACTIONS (13)
  - APATHY [None]
  - BRADYPHRENIA [None]
  - CONDITION AGGRAVATED [None]
  - DEPRESSION [None]
  - EMOTIONAL DISORDER [None]
  - FEELING ABNORMAL [None]
  - HALLUCINATION, AUDITORY [None]
  - LOSS OF EMPLOYMENT [None]
  - SLEEP TALKING [None]
  - SLEEP TERROR [None]
  - SOMNOLENCE [None]
  - SPEECH DISORDER [None]
  - SUICIDAL BEHAVIOUR [None]
